FAERS Safety Report 7035316-6 (Version None)
Quarter: 2010Q4

REPORT INFORMATION
  Report Type: 
  Country: None (occurrence: None)
  Receive Date: 20101008
  Receipt Date: 20101001
  Transmission Date: 20110411
  Serious: Yes (Other)
  Sender: FDA-Public Use
  Company Number: B0677454A

PATIENT
  Age: 68 Year
  Sex: Female

DRUGS (1)
  1. HYCAMTIN [Suspect]

REACTIONS (1)
  - HAEMATOTOXICITY [None]
